FAERS Safety Report 7157032 (Version 5)
Quarter: 2016Q1

REPORT INFORMATION
  Report Type: Report from Study
  Country: JP (occurrence: JP)
  Receive Date: 20091023
  Receipt Date: 20160201
  Transmission Date: 20160526
  Serious: Yes (Hospitalization)
  Sender: FDA-Public Use
  Company Number: PHHY2009JP44481

PATIENT
  Age: 67 Year
  Sex: Male
  Weight: 72 kg

DRUGS (8)
  1. COMTAN [Suspect]
     Active Substance: ENTACAPONE
     Indication: DRUG EFFECT DECREASED
  2. LEVODOPA-CARBIDOPA [Concomitant]
     Active Substance: CARBIDOPA\LEVODOPA
     Indication: PARKINSON^S DISEASE
     Dosage: 300 MG, UNK
     Route: 048
     Dates: start: 20030820, end: 20081007
  3. BI-SIFROL [Concomitant]
     Active Substance: PRAMIPEXOLE
     Indication: PARKINSON^S DISEASE
     Dosage: 1.5 MG, UNK
     Route: 048
     Dates: start: 20070508
  4. MADOPAR [Concomitant]
     Active Substance: BENSERAZIDE HYDROCHLORIDE\LEVODOPA
     Indication: PARKINSON^S DISEASE
     Dosage: 400 MG, UNK
     Route: 048
     Dates: start: 20081008
  5. SELBEX [Concomitant]
     Active Substance: TEPRENONE
     Indication: GASTRITIS
     Dosage: 150 MG, UNK
     Route: 048
     Dates: start: 19990907
  6. JUVELA NICOTINATE [Concomitant]
     Active Substance: TOCOPHERYL NICOTINATE, D-.ALPHA.
     Indication: NEUROPATHY PERIPHERAL
     Dosage: 600 MG, UNK
     Route: 048
     Dates: start: 19970826
  7. COMTAN [Suspect]
     Active Substance: ENTACAPONE
     Indication: PARKINSON^S DISEASE
     Dosage: 100 MG, QID
     Route: 048
     Dates: start: 20081007
  8. SYMMETREL [Concomitant]
     Active Substance: AMANTADINE HYDROCHLORIDE
     Indication: PARKINSON^S DISEASE
     Dosage: 100 MG, UNK
     Route: 048
     Dates: start: 20050913

REACTIONS (7)
  - Dyspnoea [Recovered/Resolved]
  - Cardiac failure [Recovered/Resolved]
  - Blood urea increased [Unknown]
  - Blood creatine phosphokinase increased [Unknown]
  - Hypoglycaemia [Unknown]
  - Fall [Unknown]
  - Blood creatinine increased [Unknown]

NARRATIVE: CASE EVENT DATE: 20090309
